FAERS Safety Report 8616502-8 (Version None)
Quarter: 2012Q3

REPORT INFORMATION
  Report Type: 
  Country: None (occurrence: None)
  Receive Date: 20120823
  Receipt Date: 20120816
  Transmission Date: 20120928
  Serious: Yes (Hospitalization, Disabling, Other)
  Sender: FDA-Public Use
  Company Number: US-009507513-1203USA03478

PATIENT

DRUGS (5)
  1. FOSAMAX [Suspect]
     Indication: OSTEOPENIA
     Route: 048
     Dates: start: 19990101, end: 20030101
  2. FOSAMAX [Suspect]
     Dosage: 70 MG, QW
     Route: 048
     Dates: start: 20031105
  3. ALENDRONATE SODIUM [Suspect]
     Indication: OSTEOPOROSIS
     Dosage: 70 MG, QW
     Route: 048
     Dates: start: 20090326, end: 20091105
  4. ALENDRONATE SODIUM [Suspect]
     Dosage: 70 MG, UNK
     Route: 048
     Dates: start: 20100129, end: 20111210
  5. ALENDRONATE SODIUM [Suspect]
     Dosage: 70 MG, UNK
     Route: 048

REACTIONS (44)
  - HIP FRACTURE [None]
  - ORTHOSTATIC HYPOTENSION [None]
  - CUTIS LAXA [None]
  - VERTEBROPLASTY [None]
  - FEMUR FRACTURE [None]
  - FALL [None]
  - TOOTH DISORDER [None]
  - SPINAL COMPRESSION FRACTURE [None]
  - LUNG NEOPLASM [None]
  - STRESS [None]
  - HIGH DENSITY LIPOPROTEIN DECREASED [None]
  - CEREBRAL ARTERIOSCLEROSIS [None]
  - MENTAL STATUS CHANGES [None]
  - HYPOVOLAEMIA [None]
  - VISUAL FIELD DEFECT [None]
  - BRAIN OEDEMA [None]
  - PRESYNCOPE [None]
  - APPENDICECTOMY [None]
  - ADENOIDECTOMY [None]
  - KYPHOSIS [None]
  - HYPOXIA [None]
  - VOMITING [None]
  - DEAFNESS BILATERAL [None]
  - TONSILLECTOMY [None]
  - CHRONIC OBSTRUCTIVE PULMONARY DISEASE [None]
  - EYELID RETRACTION [None]
  - TREATMENT NONCOMPLIANCE [None]
  - PULMONARY FIBROSIS [None]
  - POST-TUSSIVE VOMITING [None]
  - LUMBAR VERTEBRAL FRACTURE [None]
  - OSTEOARTHRITIS [None]
  - OSTEOPOROSIS [None]
  - LOW TURNOVER OSTEOPATHY [None]
  - ADVERSE EVENT [None]
  - INSOMNIA [None]
  - HELICOBACTER INFECTION [None]
  - ESSENTIAL TREMOR [None]
  - CEREBRAL SMALL VESSEL ISCHAEMIC DISEASE [None]
  - STRESS FRACTURE [None]
  - BENIGN PROSTATIC HYPERPLASIA [None]
  - COLON ADENOMA [None]
  - ALCOHOL ABUSE [None]
  - TRANSIENT ISCHAEMIC ATTACK [None]
  - GASTRITIS [None]
